FAERS Safety Report 9283693 (Version 2)
Quarter: 2013Q2

REPORT INFORMATION
  Report Type: Spontaneous
  Country: US (occurrence: US)
  Receive Date: 20130510
  Receipt Date: 20130628
  Transmission Date: 20140414
  Serious: Yes (Other)
  Sender: FDA-Public Use
  Company Number: US-GLAXOSMITHKLINE-A1022800A

PATIENT
  Age: 63 Year
  Sex: Female

DRUGS (14)
  1. ADVAIR [Suspect]
     Indication: ASTHMA
     Dosage: 1PUFF TWICE PER DAY
     Route: 055
  2. SINGULAIR [Concomitant]
  3. HCTZ [Concomitant]
  4. VITAMIN D [Concomitant]
  5. SALINE NOSE SPRAY [Concomitant]
  6. CENTRUM [Concomitant]
  7. THAZYME [Concomitant]
  8. PREVIDENT [Concomitant]
  9. MUCINEX [Concomitant]
  10. ALLERGY SHOTS [Concomitant]
  11. SALINE EYEDROPS [Concomitant]
  12. VENTOLIN [Concomitant]
  13. FLOVENT [Concomitant]
  14. HYDROCORTISONE OINTMENT [Concomitant]

REACTIONS (5)
  - Dyspnoea [Recovered/Resolved]
  - Sputum increased [Recovered/Resolved]
  - Restlessness [Recovered/Resolved]
  - Hypervigilance [Recovered/Resolved]
  - Product quality issue [Recovered/Resolved]
